FAERS Safety Report 14758929 (Version 1)
Quarter: 2018Q2

REPORT INFORMATION
  Report Type: Spontaneous
  Country: US (occurrence: US)
  Receive Date: 20180413
  Receipt Date: 20180413
  Transmission Date: 20180711
  Serious: No
  Sender: FDA-Public Use
  Company Number: US-MAYNE PHARMA-2017MYN000306

PATIENT

DRUGS (2)
  1. OXYCODONE HYDROCHLORIDE. [Suspect]
     Active Substance: OXYCODONE HYDROCHLORIDE
     Indication: ARTHRITIS
     Dosage: 30 MG, TID
     Route: 048
     Dates: start: 2012
  2. OXYCODONE HYDROCHLORIDE. [Suspect]
     Active Substance: OXYCODONE HYDROCHLORIDE
     Indication: OSTEOARTHRITIS

REACTIONS (2)
  - Drug ineffective [Unknown]
  - Intentional product use issue [Unknown]

NARRATIVE: CASE EVENT DATE: 2012
